FAERS Safety Report 8445731-1 (Version None)
Quarter: 2012Q2

REPORT INFORMATION
  Report Type: 
  Country: None (occurrence: None)
  Receive Date: 20120323
  Receipt Date: 20110811
  Transmission Date: 20120825
  Serious: Yes (Other)
  Sender: FDA-Public Use
  Company Number: 163-21880-11063111

PATIENT
  Age: 75 Year
  Sex: Male
  Weight: 93.9 kg

DRUGS (2)
  1. REVLIMID [Suspect]
     Indication: LYMPHATIC DISORDER
     Dosage: 10 MG, DAILY FOR 21 DAYS EVERY 28  DAYS, PO
     Route: 048
     Dates: start: 20110314
  2. REVLIMID [Suspect]

REACTIONS (7)
  - PRURITUS [None]
  - FATIGUE [None]
  - WHITE BLOOD CELL COUNT DECREASED [None]
  - INFECTION [None]
  - ANAEMIA [None]
  - NAUSEA [None]
  - MUSCLE SPASMS [None]
